FAERS Safety Report 14886552 (Version 1)
Quarter: 2018Q2

REPORT INFORMATION
  Report Type: Report from Study
  Country: CO (occurrence: CO)
  Receive Date: 20180512
  Receipt Date: 20180512
  Transmission Date: 20180711
  Serious: Yes (Other)
  Sender: FDA-Public Use
  Company Number: PHHY2018CO005215

PATIENT
  Sex: Female
  Weight: 39 kg

DRUGS (2)
  1. TOBI PODHALER [Suspect]
     Active Substance: TOBRAMYCIN
     Indication: PSEUDOMONAS INFECTION
  2. TOBI PODHALER [Suspect]
     Active Substance: TOBRAMYCIN
     Indication: CYSTIC FIBROSIS
     Dosage: 28 MG, Q12H (ONE AND HALF YEAR AGO)
     Route: 055

REACTIONS (9)
  - Cyanosis [Unknown]
  - Tremor [Unknown]
  - Headache [Unknown]
  - Arthralgia [Unknown]
  - Bone pain [Unknown]
  - Skin striae [Unknown]
  - Exophthalmos [Unknown]
  - Myalgia [Unknown]
  - Drug intolerance [Unknown]
